FAERS Safety Report 10450775 (Version 2)
Quarter: 2014Q4

REPORT INFORMATION
  Report Type: Report from Study
  Country: CA (occurrence: CA)
  Receive Date: 20140912
  Receipt Date: 20141001
  Transmission Date: 20150528
  Serious: Yes (Hospitalization)
  Sender: FDA-Public Use
  Company Number: PHHY2014CA115599

PATIENT
  Age: 26 Year
  Sex: Female

DRUGS (8)
  1. OCID//OMEPRAZOLE [Concomitant]
     Dosage: 40 MG, UNK
  2. RITALINE [Concomitant]
     Active Substance: METHYLPHENIDATE HYDROCHLORIDE
     Dosage: 20 MG, UNK
  3. EPINAL                                  /CAN/ [Concomitant]
     Dosage: 250 MG, TID
  4. VITAMIN D [Concomitant]
     Active Substance: CHOLECALCIFEROL
  5. NEURONTIN [Concomitant]
     Active Substance: GABAPENTIN
     Dosage: 300 MG, TID
  6. 5 NITROX [Concomitant]
  7. GILENYA [Suspect]
     Active Substance: FINGOLIMOD HYDROCHLORIDE
     Indication: RELAPSING-REMITTING MULTIPLE SCLEROSIS
     Route: 048
     Dates: start: 201301, end: 20140130
  8. EPIVAL [Concomitant]
     Active Substance: DIVALPROEX SODIUM
     Dosage: 25 MG, UNK

REACTIONS (3)
  - Central nervous system lesion [Recovered/Resolved]
  - Drug ineffective [Unknown]
  - Multiple sclerosis relapse [Recovered/Resolved]

NARRATIVE: CASE EVENT DATE: 201311
